FAERS Safety Report 7214887-0 (Version None)
Quarter: 2011Q1

REPORT INFORMATION
  Report Type: 
  Country: None (occurrence: None)
  Receive Date: 20110107
  Receipt Date: 20100507
  Transmission Date: 20110831
  Serious: No
  Sender: FDA-Public Use
  Company Number: A0856344A

PATIENT
  Age: 49 Year
  Sex: Male
  Weight: 93.2 kg

DRUGS (3)
  1. CRESTOR [Concomitant]
  2. TRILIPIX [Concomitant]
  3. LOVAZA [Suspect]
     Route: 048
     Dates: start: 20100201, end: 20100101

REACTIONS (1)
  - URTICARIA [None]
